FAERS Safety Report 9316183 (Version 2)
Quarter: 2013Q2

REPORT INFORMATION
  Report Type: Spontaneous
  Country: US (occurrence: None)
  Receive Date: 20130522
  Receipt Date: 20130611
  Transmission Date: 20140414
  Serious: Yes (Other)
  Sender: FDA-Public Use
  Company Number: US-1198239

PATIENT
  Age: 77 Year
  Sex: Female
  Weight: 61.24 kg

DRUGS (6)
  1. TRAVATAN Z 0.004 % OPHTHALMIC SOLUTION [Suspect]
     Indication: GLAUCOMA
     Dosage: (1GTT QD OS OPHTHALMIC)
     Route: 047
     Dates: start: 20121130, end: 20130408
  2. AZOPT 1 % OPHTHALIMIC SUSPENSION (BRINZOLAMIDE 1%) [Suspect]
     Indication: GLAUCOMA
     Dosage: (1GTT BID OPHTHALMIC)
     Dates: start: 20121130, end: 20130308
  3. NORCO [Concomitant]
  4. ALPHAGAN [Concomitant]
  5. XOPENEX [Concomitant]
  6. TAMIFLU [Concomitant]

REACTIONS (12)
  - Optic atrophy [None]
  - Visual impairment [None]
  - Visual acuity reduced [None]
  - Mydriasis [None]
  - Eye disorder [None]
  - Headache [None]
  - Ocular hyperaemia [None]
  - Eye pain [None]
  - Mydriasis [None]
  - Insomnia [None]
  - Xanthopsia [None]
  - Photophobia [None]
